FAERS Safety Report 13547463 (Version 1)
Quarter: 2017Q2

REPORT INFORMATION
  Report Type: Report from Study
  Country: US (occurrence: US)
  Receive Date: 20170515
  Receipt Date: 20170515
  Transmission Date: 20170830
  Serious: Yes (Death, Other)
  Sender: FDA-Public Use
  Company Number: US-GILEAD-2017-0272522

PATIENT
  Age: 53 Year
  Sex: Female

DRUGS (1)
  1. AZTREONAM LYSINE [Suspect]
     Active Substance: AZTREONAM LYSINE
     Indication: LUNG TRANSPLANT
     Dosage: 75 MG, UNK
     Route: 055
     Dates: start: 20160701

REACTIONS (2)
  - Death [Fatal]
  - Off label use [Recovered/Resolved]
